FAERS Safety Report 9897860 (Version 4)
Quarter: 2014Q2

REPORT INFORMATION
  Report Type: Spontaneous
  Country: US (occurrence: US)
  Receive Date: 20140214
  Receipt Date: 20140617
  Transmission Date: 20141212
  Serious: Yes (Hospitalization)
  Sender: FDA-Public Use
  Company Number: US-PFIZER INC-2014039808

PATIENT
  Age: 18 Year
  Sex: Female
  Weight: 57 kg

DRUGS (2)
  1. PREMARIN [Suspect]
     Indication: HORMONE REPLACEMENT THERAPY
     Dosage: 0.625 MG, UNK
     Route: 048
  2. PREMARIN [Suspect]
     Dosage: 0.3 MG, UNK

REACTIONS (6)
  - Migraine [Unknown]
  - Product quality issue [Unknown]
  - Rash [Unknown]
  - Fatigue [Unknown]
  - Disturbance in attention [Unknown]
  - Malaise [Unknown]
